FAERS Safety Report 15324831 (Version 2)
Quarter: 2019Q1

REPORT INFORMATION
  Report Type: Report from Study
  Country: US (occurrence: US)
  Receive Date: 20180828
  Receipt Date: 20190319
  Transmission Date: 20190417
  Serious: Yes (Other)
  Sender: FDA-Public Use
  Company Number: US-ROCHE-2175758

PATIENT
  Age: 44 Year
  Sex: Male
  Weight: 124.4 kg

DRUGS (5)
  1. LIPITOR [Concomitant]
     Active Substance: ATORVASTATIN CALCIUM
     Indication: BLOOD CHOLESTEROL INCREASED
  2. SEROQUEL [Concomitant]
     Active Substance: QUETIAPINE FUMARATE
     Indication: BIPOLAR DISORDER
  3. COREG [Concomitant]
     Active Substance: CARVEDILOL
     Indication: HYPERTENSION
     Route: 065
  4. COREG [Concomitant]
     Active Substance: CARVEDILOL
     Indication: SUPRAVENTRICULAR EXTRASYSTOLES
  5. OCREVUS [Suspect]
     Active Substance: OCRELIZUMAB
     Indication: RELAPSING-REMITTING MULTIPLE SCLEROSIS
     Dosage: RECEIVED FIRST 1/2 DOSE 13-AUG-2018
     Route: 042
     Dates: start: 20180813

REACTIONS (2)
  - Herpes zoster [Unknown]
  - Brain injury [Unknown]

NARRATIVE: CASE EVENT DATE: 20180819
